FAERS Safety Report 15812496 (Version 1)
Quarter: 2019Q1

REPORT INFORMATION
  Report Type: Spontaneous
  Country: US (occurrence: US)
  Receive Date: 20190111
  Receipt Date: 20190111
  Transmission Date: 20190417
  Serious: No
  Sender: FDA-Public Use
  Company Number: US-ALLERGAN-1833325US

PATIENT
  Age: 34 Year
  Sex: Female

DRUGS (2)
  1. DALVANCE [Suspect]
     Active Substance: DALBAVANCIN
     Indication: CELLULITIS
     Dosage: UNK, SINGLE
     Route: 042
     Dates: start: 20180630, end: 20180630
  2. TORADOL [Concomitant]
     Active Substance: KETOROLAC TROMETHAMINE
     Dosage: UNK UNK, SINGLE
     Route: 065
     Dates: start: 20180630, end: 20180630

REACTIONS (1)
  - Infusion site swelling [Recovered/Resolved]

NARRATIVE: CASE EVENT DATE: 20180630
